FAERS Safety Report 4605212-X (Version None)
Quarter: 2005Q1

REPORT INFORMATION
  Report Type: 
  Country: None (occurrence: None)
  Receive Date: 20050310
  Receipt Date: 20021001
  Transmission Date: 20050727
  Serious: No
  Sender: FDA-Public Use
  Company Number: US-BRISTOL-MYERS SQUIBB COMPANY-12072740

PATIENT
  Age: 30 Year
  Sex: Female

DRUGS (3)
  1. MONISTAT 1 COMBINATION PACK [Suspect]
     Indication: VAGINAL MYCOSIS
     Route: 067
     Dates: start: 20020925, end: 20020925
  2. LOPRESSOR [Concomitant]
  3. HYDROCHLOROTHIAZIDE [Concomitant]

REACTIONS (2)
  - DRUG INEFFECTIVE [None]
  - VAGINAL SWELLING [None]
